FAERS Safety Report 10020874 (Version 3)
Quarter: 2014Q2

REPORT INFORMATION
  Report Type: Other
  Country: JP (occurrence: JP)
  Receive Date: 20140319
  Receipt Date: 20140417
  Transmission Date: 20141212
  Serious: Yes (Other)
  Sender: FDA-Public Use
  Company Number: JP-NAPPMUNDI-GBR-2014-0017472

PATIENT
  Age: 61 Year
  Sex: Male

DRUGS (15)
  1. OXYCODONE HCL PR TABLET 10 MG [Suspect]
     Indication: ANALGESIC THERAPY
     Dosage: 10 MG, UNK
     Route: 065
  2. OXYCODONE HCL IR POWDER 0.5% [Suspect]
     Indication: PRODUCT USED FOR UNKNOWN INDICATION
     Route: 065
  3. OXYCODONE HYDROCHLORIDE [Suspect]
     Indication: PRODUCT USED FOR UNKNOWN INDICATION
     Route: 065
  4. MORPHINE SULFATE CR TABLET [Suspect]
     Indication: ANALGESIC THERAPY
     Route: 065
  5. CISPLATIN [Suspect]
     Indication: HEAD AND NECK CANCER
     Dosage: 80 MG/M2, UNK
     Route: 065
  6. FLUOROURACIL 5 FU [Suspect]
     Indication: HEAD AND NECK CANCER
     Route: 065
  7. NOVAMIN                            /00013301/ [Concomitant]
     Indication: PROPHYLAXIS OF NAUSEA AND VOMITING
     Dosage: 15 MG, DAILY
  8. QUETIAPINE [Concomitant]
  9. OLANZAPINE [Concomitant]
  10. APREPITANT [Concomitant]
     Indication: ANTIEMETIC SUPPORTIVE CARE
     Dosage: 125 MG, DAILY
  11. APREPITANT [Concomitant]
     Dosage: 80 MG, DAILY
  12. DEXAMETHASONE [Concomitant]
     Indication: ANTIEMETIC SUPPORTIVE CARE
     Dosage: 12 MG, DAILY
  13. DEXAMETHASONE [Concomitant]
     Dosage: 8 MG, DAILY
  14. LORAZEPAM [Concomitant]
     Indication: PROPHYLAXIS OF NAUSEA AND VOMITING
     Dosage: 1.5 MG, DAILY
  15. PALONOSETRON HYDROCHLORIDE [Concomitant]
     Indication: ANTIEMETIC SUPPORTIVE CARE
     Dosage: 0.75 MG, DAILY

REACTIONS (3)
  - Oesophageal rupture [Not Recovered/Not Resolved]
  - Vomiting [Not Recovered/Not Resolved]
  - Nausea [Unknown]
